FAERS Safety Report 5945968-7 (Version None)
Quarter: 2008Q4

REPORT INFORMATION
  Report Type: 
  Country: None (occurrence: None)
  Receive Date: 20081107
  Receipt Date: 20081107
  Transmission Date: 20090506
  Serious: Yes (Other)
  Sender: FDA-Public Use
  Company Number: None

PATIENT

DRUGS (1)
  1. OCEAN BRAND COMPLETE SINUS IRRIGATION [Suspect]
     Dates: start: 20081024, end: 20081024

REACTIONS (3)
  - DEVICE MALFUNCTION [None]
  - EAR PAIN [None]
  - TYMPANIC MEMBRANE DISORDER [None]
